FAERS Safety Report 6086843-X (Version None)
Quarter: 2009Q1

REPORT INFORMATION
  Report Type: 
  Country: None (occurrence: None)
  Receive Date: 20090223
  Receipt Date: 20090209
  Transmission Date: 20090719
  Serious: Yes (Death)
  Sender: FDA-Public Use
  Company Number: DE-ELI_LILLY_AND_COMPANY-DE200805000278

PATIENT
  Age: 85 Year
  Sex: Female

DRUGS (1)
  1. FORTEO [Suspect]
     Indication: OSTEOPOROSIS
     Dosage: 1 D/F, DAILY (1/D)
     Route: 058
     Dates: start: 20080131

REACTIONS (4)
  - CERVICAL VERTEBRAL FRACTURE [None]
  - DIZZINESS [None]
  - FALL [None]
  - FEELING ABNORMAL [None]
